FAERS Safety Report 11231934 (Version 2)
Quarter: 2015Q3

REPORT INFORMATION
  Report Type: Spontaneous
  Country: BE (occurrence: BE)
  Receive Date: 20150701
  Receipt Date: 20150702
  Transmission Date: 20151125
  Serious: Yes (Hospitalization)
  Sender: FDA-Public Use
  Company Number: BE-PFIZER INC-2015213896

PATIENT
  Age: 42 Year
  Sex: Female

DRUGS (8)
  1. ACETYLSALICYLIC ACID [Suspect]
     Active Substance: ASPIRIN
     Indication: ANALGESIC THERAPY
     Dosage: 500 MG, 3X/DAY
  2. DIGOXIN. [Concomitant]
     Active Substance: DIGOXIN
     Dosage: 0.25 MG, DAILY
  3. FUROSEMIDE. [Concomitant]
     Active Substance: FUROSEMIDE
     Dosage: 80 MG, DAILY
  4. MOLSIDOMINE [Concomitant]
     Active Substance: MOLSIDOMINE
     Dosage: 2 MG, 3X/DAY
  5. VIBRA-TABS [Suspect]
     Active Substance: DOXYCYCLINE HYCLATE
     Dosage: 200 MG, DAILY
  6. CAPTOPRIL. [Concomitant]
     Active Substance: CAPTOPRIL
     Dosage: 25 MG, 3X/DAY
  7. MONOTARD [Concomitant]
     Dosage: 37 U, DAILY
  8. PARACETAMOL [Suspect]
     Active Substance: ACETAMINOPHEN
     Indication: ANALGESIC THERAPY
     Dosage: 200 MG, 3X/DAY

REACTIONS (6)
  - Fatigue [Recovered/Resolved]
  - Faeces soft [Recovered/Resolved]
  - Hepatic failure [Recovered/Resolved]
  - Faeces pale [Recovered/Resolved]
  - Decreased appetite [Recovered/Resolved]
  - Foetor hepaticus [Recovered/Resolved]
